FAERS Safety Report 9743172 (Version 1)
Quarter: 2013Q4

REPORT INFORMATION
  Report Type: Spontaneous
  Country: US (occurrence: US)
  Receive Date: 20131210
  Receipt Date: 20131210
  Transmission Date: 20140711
  Serious: No
  Sender: FDA-Public Use
  Company Number: US-GILEAD-2009-0024869

PATIENT
  Sex: Female

DRUGS (10)
  1. LETAIRIS [Suspect]
     Indication: PULMONARY ARTERIAL HYPERTENSION
     Route: 048
  2. REVATIO [Concomitant]
  3. ZOCOR [Concomitant]
  4. FUROSEMIDE [Concomitant]
  5. PRANDIN [Concomitant]
  6. PREDNISONE [Concomitant]
  7. EVISTA [Concomitant]
  8. ACTONEL [Concomitant]
  9. NEXIUM [Concomitant]
  10. K-DUR [Concomitant]

REACTIONS (2)
  - Red blood cell count decreased [Not Recovered/Not Resolved]
  - Dry skin [Unknown]
